FAERS Safety Report 15687771 (Version 1)
Quarter: 2018Q4

REPORT INFORMATION
  Report Type: Spontaneous
  Country: US (occurrence: US)
  Receive Date: 20181205
  Receipt Date: 20181205
  Transmission Date: 20190205
  Serious: Yes (Other)
  Sender: FDA-Public Use
  Company Number: US-ROCHE-2187163

PATIENT
  Age: 84 Year
  Sex: Female

DRUGS (1)
  1. ACTIVASE [Suspect]
     Active Substance: ALTEPLASE
     Indication: ISCHAEMIC STROKE
     Route: 065

REACTIONS (5)
  - Headache [Unknown]
  - Cerebral haemorrhage [Unknown]
  - Vomiting [Unknown]
  - Dizziness [Unknown]
  - Subarachnoid haemorrhage [Unknown]
